FAERS Safety Report 9937069 (Version 1)
Quarter: 2014Q1

REPORT INFORMATION
  Report Type: Spontaneous
  Country: US (occurrence: None)
  Receive Date: 20140122
  Receipt Date: 20140122
  Transmission Date: 20141002
  Serious: No
  Sender: FDA-Public Use
  Company Number: AP356-00236-SPO-US

PATIENT
  Age: 58 Year
  Sex: Female
  Weight: 75.4 kg

DRUGS (4)
  1. BELVIQ (LORCASERIN HYDROCHLORIDE) [Suspect]
     Indication: WEIGHT DECREASED
     Route: 048
     Dates: start: 20131023, end: 20131023
  2. DIOVAN (VALSARTAN) [Concomitant]
  3. PRAVACHOL (PRAVASTATIN SODIUM) [Concomitant]
  4. VITAMINS (PYRIDOXINE HYDROCHLORIDE) [Concomitant]

REACTIONS (2)
  - Headache [None]
  - Dizziness [None]
